FAERS Safety Report 12740569 (Version 1)
Quarter: 2016Q3

REPORT INFORMATION
  Report Type: Spontaneous
  Country: US (occurrence: US)
  Receive Date: 20160913
  Receipt Date: 20160913
  Transmission Date: 20161109
  Serious: No
  Sender: FDA-Public Use
  Company Number: US-AMGEN-USASP2016120459

PATIENT
  Age: 61 Year
  Sex: Male

DRUGS (23)
  1. SYNTHROID [Concomitant]
     Active Substance: LEVOTHYROXINE SODIUM
     Dosage: UNK
  2. VITAMIN D3 [Concomitant]
     Active Substance: CHOLECALCIFEROL
     Dosage: UNK
  3. ENBREL [Suspect]
     Active Substance: ETANERCEPT
     Indication: PSORIATIC ARTHROPATHY
     Dosage: 50 MG, QWK
     Route: 058
     Dates: start: 20160802
  4. MEDROL [Concomitant]
     Active Substance: METHYLPREDNISOLONE
     Dosage: UNK
  5. VYVANSE [Concomitant]
     Active Substance: LISDEXAMFETAMINE DIMESYLATE
     Dosage: UNK
  6. ATIVAN [Concomitant]
     Active Substance: LORAZEPAM
     Dosage: UNK
  7. NEURONTIN [Concomitant]
     Active Substance: GABAPENTIN
     Dosage: UNK
  8. PANTOPRAZOLE [Concomitant]
     Active Substance: PANTOPRAZOLE SODIUM
     Dosage: UNK
  9. VITAMIN C [Concomitant]
     Active Substance: ASCORBIC ACID
     Dosage: UNK
  10. RANITIDINE. [Concomitant]
     Active Substance: RANITIDINE
     Dosage: UNK
  11. DIFLUCAN [Concomitant]
     Active Substance: FLUCONAZOLE
     Dosage: UNK
  12. CYMBALTA [Concomitant]
     Active Substance: DULOXETINE HYDROCHLORIDE
     Dosage: UNK
  13. PROBIOTIC [Concomitant]
     Active Substance: PROBIOTICS NOS
     Dosage: UNK
  14. COQ10 [Concomitant]
     Active Substance: UBIDECARENONE
     Dosage: UNK
  15. NORVASC [Concomitant]
     Active Substance: AMLODIPINE BESYLATE
     Dosage: 10 MG, UNK
  16. MAGNESIUM [Concomitant]
     Active Substance: MAGNESIUM
     Dosage: UNK
  17. OMEGA 3 FISH OIL [Concomitant]
     Active Substance: FISH OIL\OMEGA-3 FATTY ACIDS
     Dosage: UNK
  18. NORVASC [Concomitant]
     Active Substance: AMLODIPINE BESYLATE
     Dosage: 5 MG, UNK
  19. FLOMAX [Concomitant]
     Active Substance: TAMSULOSIN HYDROCHLORIDE
     Dosage: UNK
  20. LUNESTA [Concomitant]
     Active Substance: ESZOPICLONE
     Dosage: UNK
  21. VITAMIN B12 [Concomitant]
     Active Substance: CYANOCOBALAMIN
     Dosage: UNK
  22. LEUCOVORIN CALCIUM. [Concomitant]
     Active Substance: LEUCOVORIN CALCIUM
     Dosage: UNK
  23. ASA [Concomitant]
     Active Substance: ASPIRIN
     Dosage: UNK

REACTIONS (12)
  - Arthralgia [Unknown]
  - Increased tendency to bruise [Unknown]
  - Oedema peripheral [Unknown]
  - Swollen tongue [Recovering/Resolving]
  - Rash macular [Unknown]
  - Heart rate increased [Unknown]
  - Laceration [Unknown]
  - Scab [Unknown]
  - Injury [Unknown]
  - Blood pressure increased [Unknown]
  - Contusion [Unknown]
  - Erythema [Unknown]

NARRATIVE: CASE EVENT DATE: 2016
